FAERS Safety Report 25112540 (Version 2)
Quarter: 2025Q1

REPORT INFORMATION
  Report Type: Spontaneous
  Country: US (occurrence: US)
  Receive Date: 20250324
  Receipt Date: 20250325
  Transmission Date: 20250409
  Serious: No
  Sender: UCB
  Company Number: US-UCBSA-2024062009

PATIENT
  Age: 48 Year
  Sex: Female

DRUGS (1)
  1. BIMZELX [Suspect]
     Active Substance: BIMEKIZUMAB-BKZX
     Indication: Psoriatic arthropathy
     Dosage: 160 MILLIGRAM, EV 4 WEEKS
     Route: 058
     Dates: start: 202410

REACTIONS (9)
  - Chest pain [Unknown]
  - Asthenia [Unknown]
  - Arthralgia [Unknown]
  - Gastroenteritis viral [Unknown]
  - Hepatic mass [Unknown]
  - Pulmonary mass [Unknown]
  - Breast mass [Unknown]
  - Nodule [Unknown]
  - Influenza [Unknown]

NARRATIVE: CASE EVENT DATE: 20241122
